FAERS Safety Report 16701866 (Version 1)
Quarter: 2019Q3

REPORT INFORMATION
  Report Type: Spontaneous
  Country: US (occurrence: US)
  Receive Date: 20190717
  Receipt Date: 20190717
  Transmission Date: 20191004
  Serious: Yes (Hospitalization)
  Sender: FDA-Public Use
  Company Number: None

PATIENT
  Age: 19 Year
  Sex: Female

DRUGS (3)
  1. ZOLOFT [Concomitant]
     Active Substance: SERTRALINE HYDROCHLORIDE
  2. HEPARIN [Suspect]
     Active Substance: HEPARIN SODIUM
  3. LUMIZYME [Concomitant]
     Active Substance: ALGLUCOSIDASE ALFA
     Dosage: ?          OTHER FREQUENCY:EVERY 2 WKS AS DIR;?
     Route: 042
     Dates: start: 20190215

REACTIONS (2)
  - Product availability issue [None]
  - Product dispensing error [None]

NARRATIVE: CASE EVENT DATE: 20190714
